FAERS Safety Report 9467856 (Version 2)
Quarter: 2013Q3

REPORT INFORMATION
  Report Type: Spontaneous
  Country: US (occurrence: US)
  Receive Date: 20130821
  Receipt Date: 20130913
  Transmission Date: 20140515
  Serious: No
  Sender: FDA-Public Use
  Company Number: US-009507513-1308USA008990

PATIENT
  Sex: Female
  Weight: 61.22 kg

DRUGS (6)
  1. CLARITIN [Suspect]
     Indication: SNEEZING
     Dosage: 10 MG, ONCE
     Route: 048
  2. CLARITIN [Suspect]
     Indication: RHINORRHOEA
  3. CLARITIN [Suspect]
     Indication: SINUS DISORDER
  4. CLARITIN [Suspect]
     Indication: HYPERSENSITIVITY
  5. ASCORBIC ACID [Concomitant]
     Indication: PRODUCT USED FOR UNKNOWN INDICATION
     Dosage: UNK, UNKNOWN
  6. TYLENOL [Concomitant]
     Indication: PRODUCT USED FOR UNKNOWN INDICATION
     Dosage: UNK, UNKNOWN

REACTIONS (6)
  - Headache [Recovered/Resolved]
  - Fatigue [Unknown]
  - Asthenia [Unknown]
  - Lacrimation increased [Recovered/Resolved]
  - Migraine [Recovered/Resolved]
  - Pain [Recovered/Resolved]
